FAERS Safety Report 6528171-1 (Version None)
Quarter: 2009Q4

REPORT INFORMATION
  Report Type: 
  Country: None (occurrence: None)
  Receive Date: 20091231
  Receipt Date: 20091217
  Transmission Date: 20100525
  Serious: Yes (Life-Threatening)
  Sender: FDA-Public Use
  Company Number: 1000008921

PATIENT
  Age: 81 Year
  Sex: Female

DRUGS (9)
  1. CITALOPRAM HYDROBROMIDE [Suspect]
     Dosage: (20 MG), ORAL
     Route: 048
  2. DICLOBENE (GEL) [Suspect]
  3. FURON [Suspect]
     Dosage: (40 MG), ORAL
     Route: 048
  4. MIRFULAN-SALBE [Concomitant]
  5. THEOSPIREX [Concomitant]
  6. ENALAPRILAT [Concomitant]
  7. GABAPENTIN [Concomitant]
  8. POTASSIUM CHLORIDE [Concomitant]
  9. PRAVASTATIN [Concomitant]

REACTIONS (3)
  - GASTRIC ULCER HAEMORRHAGE [None]
  - HAEMOGLOBIN DECREASED [None]
  - HYPONATRAEMIA [None]
